FAERS Safety Report 4819495-4 (Version None)
Quarter: 2005Q4

REPORT INFORMATION
  Report Type: 
  Country: None (occurrence: None)
  Receive Date: 20051031
  Receipt Date: 20050629
  Transmission Date: 20060501
  Serious: No
  Sender: FDA-Public Use
  Company Number: 2005PV000181

PATIENT
  Age: 63 Year
  Sex: Male
  Weight: 115.2136 kg

DRUGS (14)
  1. SYMLIN [Suspect]
     Indication: DIABETES MELLITUS NON-INSULIN-DEPENDENT
     Dosage: 60 MCG; 120 MCG; TID; SC
     Route: 058
     Dates: start: 20050601, end: 20050601
  2. SYMLIN [Suspect]
     Indication: DIABETES MELLITUS NON-INSULIN-DEPENDENT
     Dosage: 60 MCG; 120 MCG; TID; SC
     Route: 058
     Dates: start: 20050619, end: 20050601
  3. SYMLIN [Suspect]
     Indication: DIABETES MELLITUS NON-INSULIN-DEPENDENT
     Dosage: 60 MCG; 120 MCG; TID; SC
     Route: 058
     Dates: start: 20050601
  4. HUMALOG [Concomitant]
  5. HUMULIN N [Concomitant]
  6. IMDUR [Concomitant]
  7. VASOTEC [Concomitant]
  8. LIPITOR [Concomitant]
  9. TOPROL-XL [Concomitant]
  10. CARDIZEM [Concomitant]
  11. NITROQUICK [Concomitant]
  12. BUMEX [Concomitant]
  13. K-DUR 10 [Concomitant]
  14. ECOTRIN [Concomitant]

REACTIONS (1)
  - DRUG INEFFECTIVE [None]
